FAERS Safety Report 20820123 (Version 1)
Quarter: 2022Q2

REPORT INFORMATION
  Report Type: Spontaneous
  Country: US (occurrence: None)
  Receive Date: 20220512
  Receipt Date: 20220512
  Transmission Date: 20220721
  Serious: No
  Sender: FDA-Public Use
  Company Number: None

PATIENT
  Age: 78 Year
  Sex: Male
  Weight: 62.14 kg

DRUGS (1)
  1. CEFEPIME HYDROCHLORIDE [Suspect]
     Active Substance: CEFEPIME HYDROCHLORIDE
     Indication: Arthritis bacterial
     Dosage: FREQUENCY : AT BEDTIME;?
     Route: 042
     Dates: start: 20210807, end: 20210808

REACTIONS (7)
  - Confusional state [None]
  - Facial paralysis [None]
  - Infection [None]
  - Refusal of treatment by relative [None]
  - Hypersensitivity [None]
  - Delirium [None]
  - Neurotoxicity [None]

NARRATIVE: CASE EVENT DATE: 20210810
